FAERS Safety Report 23994864 (Version 2)
Quarter: 2024Q3

REPORT INFORMATION
  Report Type: Spontaneous
  Country: CA (occurrence: CA)
  Receive Date: 20240620
  Receipt Date: 20240717
  Transmission Date: 20241016
  Serious: Yes (Death)
  Sender: PFIZER
  Company Number: CA-PFIZER INC-202400196816

PATIENT
  Age: 77 Year
  Sex: Male

DRUGS (6)
  1. VYNDAMAX [Suspect]
     Active Substance: TAFAMIDIS
     Indication: Cardiac amyloidosis
     Dosage: 61 MG, 1X/DAY
     Route: 048
     Dates: start: 20220923, end: 20240524
  2. MEMANTINE [Concomitant]
     Active Substance: MEMANTINE
     Indication: Dementia Alzheimer^s type
     Dosage: 5 MG, 2X/DAY
  3. LEVOCAR [CARBIDOPA;LEVODOPA] [Concomitant]
     Indication: Parkinson^s disease
     Dosage: 1 DF, AT BETDIME
  4. LEVOCAR [CARBIDOPA;LEVODOPA] [Concomitant]
     Indication: Parkinson^s disease
     Dosage: HALF A TABLET, DAILY
  5. QUETIAPINE [Concomitant]
     Active Substance: QUETIAPINE
     Indication: Anxiety
     Dosage: 25 MG, 2X/DAY
  6. APIXABAN [Concomitant]
     Active Substance: APIXABAN
     Indication: Atrial fibrillation
     Dosage: 5 MG, 2X/DAY

REACTIONS (5)
  - Parkinson^s disease [Fatal]
  - Dementia Alzheimer^s type [Fatal]
  - Atrial fibrillation [Fatal]
  - Cardiac amyloidosis [Fatal]
  - Disease progression [Fatal]
